FAERS Safety Report 19473584 (Version 1)
Quarter: 2021Q2

REPORT INFORMATION
  Report Type: Spontaneous
  Country: US (occurrence: US)
  Receive Date: 20210629
  Receipt Date: 20210629
  Transmission Date: 20210717
  Serious: No
  Sender: FDA-Public Use
  Company Number: US-GLAXOSMITHKLINE-2020518979

PATIENT
  Sex: Male

DRUGS (1)
  1. IBUPROFEN. [Suspect]
     Active Substance: IBUPROFEN
     Indication: ALLERGY PROPHYLAXIS
     Dosage: 1 DF (1 TABLET, WOULD RECEIVE IT PRIOR TO INFUSION)

REACTIONS (1)
  - Product use in unapproved indication [Unknown]
